FAERS Safety Report 9207164 (Version 1)
Quarter: 2013Q1

REPORT INFORMATION
  Report Type: Spontaneous
  Country: US (occurrence: None)
  Receive Date: 20120802
  Receipt Date: 20120802
  Transmission Date: 20140127
  Serious: Yes (Other)
  Sender: FDA-Public Use
  Company Number: 2011029023

PATIENT
  Age: 45 Year
  Sex: Female

DRUGS (1)
  1. CARIMUNE NF [Suspect]
     Indication: IMMUNODEFICIENCY COMMON VARIABLE

REACTIONS (5)
  - Anaphylactic reaction [None]
  - Hypotension [None]
  - Loss of consciousness [None]
  - Cyanosis [None]
  - Dyspnoea [None]
